FAERS Safety Report 15867385 (Version 1)
Quarter: 2019Q1

REPORT INFORMATION
  Report Type: Spontaneous
  Country: US (occurrence: US)
  Receive Date: 20190102
  Receipt Date: 20190102
  Transmission Date: 20190417
  Serious: No
  Sender: FDA-Public Use
  Company Number: None

PATIENT
  Age: 12 Year
  Sex: Male
  Weight: 40.37 kg

DRUGS (1)
  1. ENBREL [Suspect]
     Active Substance: ETANERCEPT
     Indication: PSORIATIC ARTHROPATHY
     Dosage: INJECT 25MG SUBCUTANEOUSLY  TWO TIMES A  WEEK 72-96 HOURS APART  AS DIRECTED  *HOLD FOR INFECTION*??-INTERRUPTED
     Route: 058
     Dates: start: 201807

REACTIONS (2)
  - Infection [None]
  - Therapy cessation [None]
